FAERS Safety Report 23891621 (Version 1)
Quarter: 2024Q2

REPORT INFORMATION
  Report Type: Spontaneous
  Country: JP (occurrence: JP)
  Receive Date: 20240524
  Receipt Date: 20240524
  Transmission Date: 20240716
  Serious: Yes (Other)
  Sender: FDA-Public Use
  Company Number: JP-TAKEDA-2024TJP007392

PATIENT

DRUGS (4)
  1. ENTYVIO [Suspect]
     Active Substance: VEDOLIZUMAB
     Indication: Colitis ulcerative
     Dosage: UNK
     Route: 041
  2. ASACOL [Concomitant]
     Active Substance: MESALAMINE
     Dosage: 9 DOSAGE FORM
     Route: 065
  3. PREDNISOLONE [Concomitant]
     Active Substance: PREDNISOLONE
     Dosage: 30 MILLIGRAM
     Route: 065
  4. PREDNISOLONE [Concomitant]
     Active Substance: PREDNISOLONE
     Dosage: 15 MILLIGRAM
     Route: 065

REACTIONS (1)
  - Colitis ulcerative [Not Recovered/Not Resolved]
